FAERS Safety Report 5691819-8 (Version None)
Quarter: 2008Q2

REPORT INFORMATION
  Report Type: 
  Country: None (occurrence: None)
  Receive Date: 20080401
  Receipt Date: 20080401
  Transmission Date: 20081010
  Serious: Yes (Life-Threatening, Hospitalization)
  Sender: FDA-Public Use
  Company Number: None

PATIENT
  Age: 10 Year
  Sex: Male
  Weight: 74.8435 kg

DRUGS (1)
  1. SINGULAIR [Suspect]
     Indication: ASTHMA
     Dosage: 5MG ONCE A DAY
     Dates: start: 20031025, end: 20080327

REACTIONS (6)
  - ANXIETY [None]
  - CRYING [None]
  - DEPRESSION [None]
  - FEAR [None]
  - INSOMNIA [None]
  - SELF ESTEEM DECREASED [None]
